FAERS Safety Report 12837116 (Version 1)
Quarter: 2016Q4

REPORT INFORMATION
  Report Type: Spontaneous
  Country: US (occurrence: US)
  Receive Date: 20161007
  Receipt Date: 20161007
  Transmission Date: 20170207
  Serious: Yes (Hospitalization)
  Sender: FDA-Public Use
  Company Number: None

PATIENT
  Age: 84 Year
  Sex: Male
  Weight: 63.9 kg

DRUGS (15)
  1. FOLKIC ACID [Concomitant]
  2. FERROUS SULFIDE [Concomitant]
     Active Substance: FERROUS SULFIDE
  3. HYDREA [Concomitant]
     Active Substance: HYDROXYUREA
  4. HYDROCODONE-ACETAMINOPHEN [Concomitant]
     Active Substance: ACETAMINOPHEN\HYDROCODONE
  5. METFORMIN [Concomitant]
     Active Substance: METFORMIN HYDROCHLORIDE
  6. CHOLECALCIFEROL [Concomitant]
     Active Substance: CHOLECALCIFEROL
  7. SERTRALINE [Concomitant]
     Active Substance: SERTRALINE HYDROCHLORIDE
  8. SIMVASTATIN. [Concomitant]
     Active Substance: SIMVASTATIN
  9. DIGOXIN. [Concomitant]
     Active Substance: DIGOXIN
  10. RUXOLITINIB [Suspect]
     Active Substance: RUXOLITINIB
     Indication: LEUKAEMIA
     Route: 048
     Dates: start: 20160506, end: 20160519
  11. ACYCLOVIR. [Concomitant]
     Active Substance: ACYCLOVIR
  12. ATENOLOL. [Concomitant]
     Active Substance: ATENOLOL
  13. ALLOPURINOL. [Concomitant]
     Active Substance: ALLOPURINOL
  14. CLOPIDOGREL [Concomitant]
     Active Substance: CLOPIDOGREL BISULFATE
  15. TRAMADOL HCL [Concomitant]
     Active Substance: TRAMADOL HYDROCHLORIDE

REACTIONS (2)
  - Leukocytosis [None]
  - Disease progression [None]

NARRATIVE: CASE EVENT DATE: 20160519
